FAERS Safety Report 12253450 (Version 2)
Quarter: 2016Q2

REPORT INFORMATION
  Report Type: Report from Study
  Country: US (occurrence: US)
  Receive Date: 20160411
  Receipt Date: 20160427
  Transmission Date: 20160815
  Serious: Yes (Other)
  Sender: FDA-Public Use
  Company Number: US-MYLANLABS-2016M1014109

PATIENT

DRUGS (2)
  1. CLOZAPINE TABLETS, USP [Suspect]
     Active Substance: CLOZAPINE
     Dosage: 25 MG, AM
     Dates: start: 20160322, end: 20160331
  2. CLOZAPINE TABLETS, USP [Suspect]
     Active Substance: CLOZAPINE
     Dosage: 75 MG, HS
     Dates: start: 20160322, end: 20160331

REACTIONS (1)
  - Neutropenia [Recovering/Resolving]

NARRATIVE: CASE EVENT DATE: 20160330
